FAERS Safety Report 12775839 (Version 1)
Quarter: 2016Q3

REPORT INFORMATION
  Report Type: Spontaneous
  Country: US (occurrence: US)
  Receive Date: 20160923
  Receipt Date: 20160923
  Transmission Date: 20161109
  Serious: No
  Sender: FDA-Public Use
  Company Number: US-BAYER-2016-185380

PATIENT
  Age: 84 Year
  Sex: Female
  Weight: 73.92 kg

DRUGS (4)
  1. VITAMIN D [Concomitant]
     Active Substance: CHOLECALCIFEROL
  2. VITAMIN B12 [Concomitant]
     Active Substance: CYANOCOBALAMIN
  3. MIRALAX [Suspect]
     Active Substance: POLYETHYLENE GLYCOL 3350
     Indication: COLON CANCER
     Dosage: 1 DF, UNK
     Route: 048
  4. CALCIMAGON [CALCIUM] [Concomitant]

REACTIONS (2)
  - Product use issue [Unknown]
  - Off label use [Unknown]
